FAERS Safety Report 11009496 (Version 1)
Quarter: 2015Q2

REPORT INFORMATION
  Report Type: Spontaneous
  Country: US (occurrence: None)
  Receive Date: 20150409
  Receipt Date: 20150409
  Transmission Date: 20150821
  Serious: Yes (Other)
  Sender: FDA-Public Use
  Company Number: None

PATIENT
  Age: 57 Year
  Sex: Male
  Weight: 90.72 kg

DRUGS (5)
  1. RANITIDINE [Concomitant]
     Active Substance: RANITIDINE\RANITIDINE HYDROCHLORIDE
  2. MULTIVITAMIN/MINERAL SUPPLEMENT [Concomitant]
  3. BESIVANCE [Suspect]
     Active Substance: BESIFLOXACIN
     Indication: CONJUNCTIVITIS
     Route: 047
     Dates: start: 20141024, end: 20141030
  4. ALEVE [Concomitant]
     Active Substance: NAPROXEN SODIUM
  5. CETERIZINE [Concomitant]

REACTIONS (3)
  - Iritis [None]
  - Eye pruritus [None]
  - Eye pain [None]

NARRATIVE: CASE EVENT DATE: 20141024
